FAERS Safety Report 11088248 (Version 2)
Quarter: 2015Q2

REPORT INFORMATION
  Report Type: Spontaneous
  Country: US (occurrence: US)
  Receive Date: 20150504
  Receipt Date: 20150529
  Transmission Date: 20150821
  Serious: No
  Sender: FDA-Public Use
  Company Number: US-PFIZER INC-2015142997

PATIENT
  Age: 68 Year
  Sex: Female
  Weight: 93 kg

DRUGS (6)
  1. LYRICA [Suspect]
     Active Substance: PREGABALIN
     Indication: NERVE COMPRESSION
  2. CRESTOR [Concomitant]
     Active Substance: ROSUVASTATIN CALCIUM
     Dosage: 40 MG, UNK
  3. ADVIL [Concomitant]
     Active Substance: IBUPROFEN
     Indication: SLEEP DISORDER
     Dosage: UNK
  4. METOPROLOL [Concomitant]
     Active Substance: METOPROLOL
     Indication: BLOOD PRESSURE ABNORMAL
     Dosage: 50 MG, UNK
  5. VITAMIN D [Concomitant]
     Active Substance: CHOLECALCIFEROL
     Indication: LIMB INJURY
     Dosage: 2000 IU, UNK
  6. LYRICA [Suspect]
     Active Substance: PREGABALIN
     Indication: NEURALGIA
     Dosage: 600 MG, DAILY (200MG ONE CAPSULE IN MORNING AND TWO CAPSULES AT BED TIME)
     Route: 048

REACTIONS (2)
  - Drug ineffective [Unknown]
  - Malaise [Unknown]
